FAERS Safety Report 17857378 (Version 1)
Quarter: 2020Q2

REPORT INFORMATION
  Report Type: Spontaneous
  Country: US (occurrence: US)
  Receive Date: 20200603
  Receipt Date: 20200603
  Transmission Date: 20200714
  Serious: No
  Sender: FDA-Public Use
  Company Number: US-ASTRAZENECA-2020SE62115

PATIENT
  Sex: Female

DRUGS (1)
  1. BYDUREON BCISE [Suspect]
     Active Substance: EXENATIDE
     Route: 065

REACTIONS (6)
  - Pain in extremity [Unknown]
  - Injection site induration [Unknown]
  - Injection site nodule [Unknown]
  - Incorrect dose administered by device [Unknown]
  - Device leakage [Unknown]
  - Injection site scab [Unknown]
